FAERS Safety Report 4395387-2 (Version None)
Quarter: 2004Q3

REPORT INFORMATION
  Report Type: 
  Country: None (occurrence: None)
  Receive Date: 20040712
  Receipt Date: 20040712
  Transmission Date: 20050211
  Serious: Yes (Death)
  Sender: FDA-Public Use
  Company Number: None

PATIENT
  Age: 67 Year
  Sex: Female

DRUGS (3)
  1. CARBOPLATIN [Suspect]
  2. TAXOL [Suspect]
  3. GEMCITABINE [Suspect]

REACTIONS (3)
  - OEDEMA PERIPHERAL [None]
  - PULMONARY TOXICITY [None]
  - REFUSAL OF TREATMENT BY PATIENT [None]
